FAERS Safety Report 11150930 (Version 1)
Quarter: 2015Q2

REPORT INFORMATION
  Report Type: Spontaneous
  Country: KZ (occurrence: None)
  Receive Date: 20150528
  Receipt Date: 20150528
  Transmission Date: 20150821
  Serious: Yes (Congenital Anomaly, Other)
  Sender: FDA-Public Use
  Company Number: KZ2015GSK070062

PATIENT
  Age: 2 Month
  Sex: Male
  Weight: 2.4 kg

DRUGS (4)
  1. PHYTOMENADION (PHYTOMENADIONE, PHYTOMENADIONE, PHYTOMENADIONE, PHYTOMENADIONE, PHYTOMENADIONE) [Concomitant]
  2. HEPATITIS B (HEPATITIS B VACCINE) [Concomitant]
  3. COMBIVIR [Suspect]
     Active Substance: LAMIVUDINE\ZIDOVUDINE
     Indication: ANTIVIRAL PROPHYLAXIS
     Dosage: 1 UNK, BID, TRANSPLACENTAL
     Route: 064
     Dates: start: 20141029, end: 20150315
  4. BACILLUS CALMETTE GUERIN [Concomitant]
     Active Substance: BCG VACCINE

REACTIONS (4)
  - Phenylketonuria [None]
  - Maternal drugs affecting foetus [None]
  - Congenital hypothyroidism [None]
  - Heart disease congenital [None]

NARRATIVE: CASE EVENT DATE: 20150318
